FAERS Safety Report 24861824 (Version 2)
Quarter: 2025Q2

REPORT INFORMATION
  Report Type: Report from Study
  Country: US (occurrence: US)
  Receive Date: 20250120
  Receipt Date: 20250407
  Transmission Date: 20250716
  Serious: Yes (Hospitalization)
  Sender: ABBVIE
  Company Number: US-ABBVIE-6086440

PATIENT
  Age: 56 Year
  Sex: Female
  Weight: 68 kg

DRUGS (4)
  1. SKYRIZI [Suspect]
     Active Substance: RISANKIZUMAB-RZAA
     Indication: Crohn^s disease
     Dosage: FORM STRENGTH: 360MG/2.4ML?WEEK 12
     Route: 058
     Dates: start: 202409
  2. SKYRIZI [Suspect]
     Active Substance: RISANKIZUMAB-RZAA
     Indication: Crohn^s disease
     Route: 042
     Dates: start: 202405, end: 202405
  3. SKYRIZI [Suspect]
     Active Substance: RISANKIZUMAB-RZAA
     Indication: Crohn^s disease
     Route: 042
     Dates: start: 202406, end: 202406
  4. SKYRIZI [Suspect]
     Active Substance: RISANKIZUMAB-RZAA
     Indication: Crohn^s disease
     Route: 042
     Dates: start: 202407, end: 202407

REACTIONS (14)
  - Obstruction [Recovering/Resolving]
  - Vomiting [Unknown]
  - Respiratory tract infection viral [Recovered/Resolved]
  - Pain [Recovered/Resolved]
  - Chills [Recovered/Resolved]
  - Pyrexia [Recovered/Resolved]
  - Fatigue [Recovering/Resolving]
  - Abdominal pain [Unknown]
  - Nausea [Unknown]
  - Decreased appetite [Unknown]
  - Abdominal distension [Unknown]
  - Diarrhoea [Unknown]
  - Haematochezia [Unknown]
  - Gastrointestinal sounds abnormal [Unknown]

NARRATIVE: CASE EVENT DATE: 20240101
